FAERS Safety Report 19154906 (Version 2)
Quarter: 2021Q2

REPORT INFORMATION
  Report Type: Spontaneous
  Country: DE (occurrence: DE)
  Receive Date: 20210419
  Receipt Date: 20210505
  Transmission Date: 20210717
  Serious: Yes (Hospitalization, Other)
  Sender: FDA-Public Use
  Company Number: NVSC2021DE083622

PATIENT
  Age: 62 Year
  Sex: Female
  Weight: 65 kg

DRUGS (10)
  1. RANOLAZINE. [Suspect]
     Active Substance: RANOLAZINE
     Indication: HYPERTENSION
     Dosage: 375 MILLIGRAM, QD
     Route: 065
  2. MOCLOBEMIDE [Interacting]
     Active Substance: MOCLOBEMIDE
     Dosage: 450 MG, QD
     Route: 065
  3. MOCLOBEMIDE [Interacting]
     Active Substance: MOCLOBEMIDE
     Indication: DEPRESSIVE SYMPTOM
     Dosage: 150 MG, QD
     Route: 065
  4. PRAMIPEXOLE. [Concomitant]
     Active Substance: PRAMIPEXOLE
     Indication: PARKINSON^S DISEASE
     Dosage: 0.525 MG, QD
     Route: 065
  5. AGOMELATINE [Concomitant]
     Active Substance: AGOMELATINE
     Indication: INSOMNIA
     Dosage: 50 MG, QD
     Route: 065
  6. AGOMELATINE [Concomitant]
     Active Substance: AGOMELATINE
     Indication: HYPERTENSION
  7. RASAGILINE. [Suspect]
     Active Substance: RASAGILINE
     Indication: PARKINSON^S DISEASE
     Dosage: 1 MG, QD
     Route: 065
  8. L?THYROXINE [Concomitant]
     Active Substance: LEVOTHYROXINE
     Indication: HYPOTHYROIDISM
     Dosage: 100 UG, QD
     Route: 065
  9. L?DOPA+BENSERAZIDE [Concomitant]
     Active Substance: BENSERAZIDE\LEVODOPA
     Indication: PARKINSON^S DISEASE
     Dosage: 200 PLUS 50MG/DAY
     Route: 065
  10. PRAMIPEXOLE. [Concomitant]
     Active Substance: PRAMIPEXOLE
     Indication: PARKINSONISM

REACTIONS (4)
  - Drug level increased [Unknown]
  - Serotonin syndrome [Recovered/Resolved]
  - Drug interaction [Recovered/Resolved]
  - Contraindicated product administered [Unknown]
